FAERS Safety Report 8936270 (Version 1)
Quarter: 2012Q4

REPORT INFORMATION
  Report Type: 
  Country: US (occurrence: US)
  Receive Date: 20121130
  Receipt Date: 20121130
  Transmission Date: 20130627
  Serious: No
  Sender: FDA-Public Use
  Company Number: US-PFIZER INC-2012300393

PATIENT
  Age: 60 Year
  Sex: Female
  Weight: 45.35 kg

DRUGS (5)
  1. NEURONTIN [Suspect]
     Indication: NERVE PAIN
     Dosage: UNK,3x/day
     Dates: end: 2012
  2. NEURONTIN [Suspect]
     Indication: REFLEX SYMPATHETIC DYSTROPHY
  3. LYRICA [Suspect]
     Indication: NERVE PAIN
     Dosage: 75 mg, 3x/day
     Dates: start: 2012, end: 20121120
  4. LYRICA [Suspect]
     Indication: REFLEX SYMPATHETIC DYSTROPHY
  5. VICODIN [Suspect]
     Indication: PAIN
     Dosage: 5/500 mg,6x/day
     Dates: start: 2009

REACTIONS (5)
  - Gastric disorder [Recovering/Resolving]
  - Gastrointestinal pain [Recovering/Resolving]
  - Drug intolerance [Unknown]
  - Insomnia [Unknown]
  - Pain [Unknown]
